FAERS Safety Report 9920881 (Version 1)
Quarter: 2014Q1

REPORT INFORMATION
  Report Type: Report from Study
  Country: US (occurrence: US)
  Receive Date: 20140225
  Receipt Date: 20140225
  Transmission Date: 20141002
  Serious: Yes (Other)
  Sender: FDA-Public Use
  Company Number: US-ROCHE-1332888

PATIENT
  Age: 72 Year
  Sex: Female

DRUGS (9)
  1. LUCENTIS [Suspect]
     Indication: AGE-RELATED MACULAR DEGENERATION
     Route: 050
  2. LUCENTIS [Suspect]
     Indication: MACULAR DEGENERATION
  3. AVASTIN [Suspect]
     Indication: PRODUCT USED FOR UNKNOWN INDICATION
     Route: 050
  4. SYSTANE [Concomitant]
     Dosage: PRN
     Route: 047
  5. PRESERVISION AREDS [Concomitant]
  6. LIPITOR [Concomitant]
  7. ZOLOFT [Concomitant]
  8. PREDNISONE [Concomitant]
     Route: 065
  9. EYLEA [Concomitant]

REACTIONS (14)
  - Eye discharge [Unknown]
  - Retinal oedema [Unknown]
  - Ocular hyperaemia [Unknown]
  - Eye irritation [Unknown]
  - Vitreous floaters [Unknown]
  - Metamorphopsia [Unknown]
  - Respiratory disorder [Unknown]
  - Musculoskeletal disorder [Unknown]
  - Depression [Unknown]
  - Headache [Unknown]
  - Visual acuity reduced [Unknown]
  - Vitreous detachment [Unknown]
  - Conjunctival disorder [Unknown]
  - Eye pain [Unknown]
